FAERS Safety Report 9788197 (Version 2)
Quarter: 2014Q1

REPORT INFORMATION
  Report Type: Spontaneous
  Country: BR (occurrence: BR)
  Receive Date: 20131230
  Receipt Date: 20140321
  Transmission Date: 20141002
  Serious: Yes (Hospitalization, Other)
  Sender: FDA-Public Use
  Company Number: BR-ABBVIE-13P-020-1182914-00

PATIENT
  Age: 33 Year
  Sex: Male
  Weight: 58 kg

DRUGS (3)
  1. HUMIRA [Suspect]
     Indication: JUVENILE IDIOPATHIC ARTHRITIS
     Route: 058
     Dates: end: 20131103
  2. HUMIRA [Suspect]
     Dates: start: 20140125
  3. NAPROXEN [Concomitant]
     Indication: PAIN

REACTIONS (4)
  - Osteoarthritis [Recovered/Resolved]
  - Cartilage atrophy [Recovered/Resolved]
  - Joint swelling [Recovered/Resolved]
  - Night sweats [Not Recovered/Not Resolved]
